FAERS Safety Report 4514954-6 (Version None)
Quarter: 2004Q4

REPORT INFORMATION
  Report Type: 
  Country: None (occurrence: None)
  Receive Date: 20041126
  Receipt Date: 20041111
  Transmission Date: 20050328
  Serious: Yes (Life-Threatening)
  Sender: FDA-Public Use
  Company Number: 2004072527

PATIENT
  Age: 61 Year
  Sex: Male

DRUGS (2)
  1. SULPERAZON (CEFOPERAZONE, SULBACTAM) [Suspect]
     Indication: ILL-DEFINED DISORDER
     Dosage: 2 GRAM (1 D), INTRAVENOUS
     Route: 042
     Dates: start: 20040101, end: 20040918
  2. CORTICOSTEROID NOS (CORTICOSTEROID NOS) [Concomitant]

REACTIONS (5)
  - DRUG INEFFECTIVE [None]
  - DYSPNOEA [None]
  - NAUSEA [None]
  - PYREXIA [None]
  - SHOCK [None]
